FAERS Safety Report 8030152-6 (Version None)
Quarter: 2012Q1

REPORT INFORMATION
  Report Type: 
  Country: None (occurrence: None)
  Receive Date: 20120109
  Receipt Date: 20111231
  Transmission Date: 20120608
  Serious: Yes (Hospitalization)
  Sender: FDA-Public Use
  Company Number: US-BAYER-2011-027744

PATIENT
  Sex: Female
  Weight: 69.977 kg

DRUGS (8)
  1. YAZ [Suspect]
     Dosage: UNK
     Dates: start: 20070501, end: 20080101
  2. AVELOX [Concomitant]
     Dosage: 400 MG, UNK
     Route: 048
  3. ACETYLSALICYLIC ACID SRT [Concomitant]
  4. ANTIBIOTICS [Concomitant]
     Dosage: UNK
     Dates: start: 20070503
  5. PLAVIX [Concomitant]
  6. MULTI-VITAMIN [Concomitant]
  7. YAZ [Suspect]
     Dosage: UNK
  8. PLAVIX [Concomitant]
     Dosage: 75 MG, UNK
     Route: 048
     Dates: end: 20070814

REACTIONS (8)
  - INJURY [None]
  - GENERAL PHYSICAL HEALTH DETERIORATION [None]
  - ANXIETY [None]
  - CHOLECYSTITIS CHRONIC [None]
  - PAIN [None]
  - ANHEDONIA [None]
  - CHOLECYSTECTOMY [None]
  - EMOTIONAL DISTRESS [None]
